FAERS Safety Report 11971573 (Version 4)
Quarter: 2021Q1

REPORT INFORMATION
  Report Type: Spontaneous
  Country: US (occurrence: US)
  Receive Date: 20160128
  Receipt Date: 20210114
  Transmission Date: 20210419
  Serious: Yes (Other)
  Sender: FDA-Public Use
  Company Number: US-PFIZER INC-2016044751

PATIENT
  Age: 60 Year
  Sex: Male
  Weight: 64 kg

DRUGS (21)
  1. LYRICA [Suspect]
     Active Substance: PREGABALIN
     Indication: SPINAL OSTEOARTHRITIS
     Dosage: 200 MG, 2X/DAY
     Route: 048
  2. DULERA [Concomitant]
     Active Substance: FORMOTEROL FUMARATE DIHYDRATE\MOMETASONE FUROATE
     Dosage: 10 UG, UNK
  3. LYRICA [Suspect]
     Active Substance: PREGABALIN
     Indication: CENTRAL PAIN SYNDROME
     Dosage: 75 MG, 3X/DAY
     Route: 048
     Dates: start: 2011
  4. PREDNISONE. [Concomitant]
     Active Substance: PREDNISONE
     Indication: DYSPNOEA
     Dosage: 5 MG, 1X/DAY
  5. DULOXETINE. [Concomitant]
     Active Substance: DULOXETINE
     Indication: PAIN
     Dosage: 60 MG, 2X/DAY
  6. LISINOPRIL HCTZ [Concomitant]
     Active Substance: HYDROCHLOROTHIAZIDE\LISINOPRIL
     Indication: BLOOD PRESSURE ABNORMAL
     Dosage: 20/25 MG ONCE DAILY
  7. LACTULOSE. [Concomitant]
     Active Substance: LACTULOSE
     Indication: LAXATIVE SUPPORTIVE CARE
     Dosage: 10GM/15SOL LIQUID, 1 TABLESPOON, 1X/DAY
  8. PROAIR HFA [Concomitant]
     Active Substance: ALBUTEROL SULFATE
     Indication: DYSPNOEA
     Dosage: TWO PUFFS EVERY FOUR HOURS AS NEEDED
  9. IPRATROPIUM [Concomitant]
     Active Substance: IPRATROPIUM
     Indication: CHRONIC OBSTRUCTIVE PULMONARY DISEASE
     Dosage: 3 ML, 4X/DAY
  10. VENTOLIN HFA [Concomitant]
     Active Substance: ALBUTEROL SULFATE
     Indication: CHRONIC OBSTRUCTIVE PULMONARY DISEASE
     Dosage: 180 UG, AS NEEDED (90MCG INHALE 2 PUFFS EVERY 4 HOURS AS NEEDED)
  11. MORPHINE SULFATE ER [Concomitant]
     Active Substance: MORPHINE SULFATE
     Indication: PAIN
     Dosage: 30 MG, 2X/DAY
  12. LYRICA [Suspect]
     Active Substance: PREGABALIN
     Indication: PAIN
     Dosage: 100 MG, 3X/DAY
     Route: 048
  13. LYRICA [Suspect]
     Active Substance: PREGABALIN
     Indication: LUMBOSACRAL RADICULOPATHY
     Dosage: 100 MG, 3X/DAY
     Route: 048
     Dates: start: 2014
  14. CYMBALTA [Suspect]
     Active Substance: DULOXETINE HYDROCHLORIDE
     Indication: MOOD ALTERED
  15. OXYCODONE [Concomitant]
     Active Substance: OXYCODONE
     Dosage: 7.5/325 MG, 4X/DAY
  16. CYMBALTA [Suspect]
     Active Substance: DULOXETINE HYDROCHLORIDE
     Indication: CENTRAL PAIN SYNDROME
     Dosage: 60 MG, 2X/DAY
     Route: 048
  17. CYMBALTA [Suspect]
     Active Substance: DULOXETINE HYDROCHLORIDE
     Indication: PAIN
  18. DICLOFENAC [Concomitant]
     Active Substance: DICLOFENAC
     Indication: PAIN
     Dosage: 100 MG, 1X/DAY
  19. TAMSULOSIN [Concomitant]
     Active Substance: TAMSULOSIN
     Indication: RENAL DISORDER
     Dosage: 0.4 MG, 1X/DAY
  20. DULOXETINE. [Concomitant]
     Active Substance: DULOXETINE
     Indication: BIPOLAR DISORDER
  21. OXYCODONE [Concomitant]
     Active Substance: OXYCODONE
     Indication: PAIN
     Dosage: 10/325 MG TABLET, 3X/DAY

REACTIONS (7)
  - Malaise [Unknown]
  - Dyspnoea [Unknown]
  - Renal mass [Unknown]
  - Pneumonia [Unknown]
  - Spinal fracture [Not Recovered/Not Resolved]
  - Oxygen saturation decreased [Unknown]
  - Joint swelling [Not Recovered/Not Resolved]

NARRATIVE: CASE EVENT DATE: 201512
